FAERS Safety Report 12168568 (Version 3)
Quarter: 2016Q2

REPORT INFORMATION
  Report Type: Spontaneous
  Country: US (occurrence: US)
  Receive Date: 20160310
  Receipt Date: 20160627
  Transmission Date: 20160815
  Serious: Yes (Hospitalization, Disabling, Other)
  Sender: FDA-Public Use
  Company Number: US-009507513-1603USA004539

PATIENT
  Sex: Male
  Weight: 117.1 kg

DRUGS (1)
  1. PROPECIA [Suspect]
     Active Substance: FINASTERIDE
     Indication: ANDROGENETIC ALOPECIA
     Dosage: 1 MG, QD
     Route: 048
     Dates: start: 20090115, end: 20120701

REACTIONS (16)
  - Brain injury [Unknown]
  - Anxiety [Unknown]
  - Lumbar radiculopathy [Unknown]
  - Neuritis [Unknown]
  - Erectile dysfunction [Not Recovered/Not Resolved]
  - Hormone level abnormal [Unknown]
  - Sleep disorder [Unknown]
  - Endocrine disorder [Not Recovered/Not Resolved]
  - Loss of libido [Unknown]
  - Penis injury [Not Recovered/Not Resolved]
  - Sexual dysfunction [Not Recovered/Not Resolved]
  - Penile size reduced [Unknown]
  - Depression [Unknown]
  - Painful ejaculation [Unknown]
  - Appendicectomy [Unknown]
  - Back injury [Unknown]

NARRATIVE: CASE EVENT DATE: 2009
